FAERS Safety Report 7802581-4 (Version None)
Quarter: 2011Q4

REPORT INFORMATION
  Report Type: 
  Country: None (occurrence: None)
  Receive Date: 20111007
  Receipt Date: 20110923
  Transmission Date: 20120403
  Serious: Yes (Other)
  Sender: FDA-Public Use
  Company Number: DE-JNJFOC-20110710841

PATIENT
  Sex: Female

DRUGS (2)
  1. ROGAINE [Suspect]
     Route: 061
  2. ROGAINE [Suspect]
     Indication: PRODUCT USED FOR UNKNOWN INDICATION
     Route: 061
     Dates: start: 20110620

REACTIONS (4)
  - HEART RATE IRREGULAR [None]
  - DIZZINESS [None]
  - PRODUCT QUALITY ISSUE [None]
  - CHEST PAIN [None]
